FAERS Safety Report 11004107 (Version 1)
Quarter: 2015Q2

REPORT INFORMATION
  Report Type: Spontaneous
  Country: US (occurrence: US)
  Receive Date: 20150409
  Receipt Date: 20150409
  Transmission Date: 20150821
  Serious: Yes (Death, Other)
  Sender: FDA-Public Use
  Company Number: US-ASTRAZENECA-2014SE11532

PATIENT
  Age: 20478 Day
  Sex: Male

DRUGS (38)
  1. LANTUS [Concomitant]
     Active Substance: INSULIN GLARGINE
     Dosage: 100 UNITS/ ML
     Dates: start: 20110627
  2. GLYCOPYRROLATE. [Concomitant]
     Active Substance: GLYCOPYRROLATE
     Dates: start: 20110627
  3. NEXIUM [Concomitant]
     Active Substance: ESOMEPRAZOLE MAGNESIUM
     Dates: start: 20110627
  4. LEVITRA [Concomitant]
     Active Substance: VARDENAFIL HYDROCHLORIDE TRIHYDRATE
     Dates: start: 20040818
  5. ROXICET/ PERCOCET [Concomitant]
     Dosage: 5-32.5 MG, EVERY FOUR HOURS
     Route: 048
     Dates: start: 19990106
  6. METFORMIN [Concomitant]
     Active Substance: METFORMIN HYDROCHLORIDE
     Route: 048
     Dates: start: 20031007
  7. OXYCODONE [Concomitant]
     Active Substance: OXYCODONE
     Dates: start: 20110627
  8. ALBUTEROL SULFATE/IPRATROPIUM [Concomitant]
     Dosage: Q6H
     Dates: start: 20110627
  9. HYDROMORPHONE [Concomitant]
     Active Substance: HYDROMORPHONE
     Dates: start: 20110627
  10. ATENOLOL. [Concomitant]
     Active Substance: ATENOLOL
     Route: 048
     Dates: start: 20030916
  11. MEPERGAN FORTIS/ MEPROZINE [Concomitant]
     Dosage: ONE TO TWO CAPSULES EVERY FOUR HOURS AS NEEDED
     Route: 048
     Dates: start: 19980123
  12. ALLEGRA [Concomitant]
     Active Substance: FEXOFENADINE HYDROCHLORIDE
     Dosage: 60-120 MG TWO TIMES A DAY
     Route: 048
     Dates: start: 20031031
  13. ZOSYN [Concomitant]
     Active Substance: PIPERACILLIN SODIUM\TAZOBACTAM SODIUM
     Dosage: 2/0.251
     Dates: start: 20110627
  14. ATIVAN/ LORAZEPAM [Concomitant]
     Dates: start: 20110627
  15. ZOFRAN [Concomitant]
     Active Substance: ONDANSETRON HYDROCHLORIDE
     Dosage: 2 MG/ ML
     Dates: start: 20110627
  16. ZOLOFT [Concomitant]
     Active Substance: SERTRALINE HYDROCHLORIDE
     Route: 048
     Dates: start: 20050121
  17. CLOPIDOGREL [Concomitant]
     Active Substance: CLOPIDOGREL BISULFATE
     Route: 048
     Dates: start: 20061204
  18. SERTRALINE [Concomitant]
     Active Substance: SERTRALINE HYDROCHLORIDE
     Route: 048
     Dates: start: 20080130
  19. ALBUTEROL. [Concomitant]
     Active Substance: ALBUTEROL
     Dates: start: 20041124
  20. METOCLOPRAMIDE. [Concomitant]
     Active Substance: METOCLOPRAMIDE
     Dates: start: 20110627
  21. ONDANSETRON [Concomitant]
     Active Substance: ONDANSETRON
     Dates: start: 20110627
  22. ASPIRIN. [Concomitant]
     Active Substance: ASPIRIN
     Dates: start: 20110627
  23. DICLOFENAC [Concomitant]
     Active Substance: DICLOFENAC
     Route: 048
     Dates: start: 20051111
  24. AVANDIA [Concomitant]
     Active Substance: ROSIGLITAZONE MALEATE
     Dates: start: 20030924
  25. LISINOPRIL. [Concomitant]
     Active Substance: LISINOPRIL
     Route: 048
     Dates: start: 20050418
  26. BYETTA [Suspect]
     Active Substance: EXENATIDE
     Route: 065
     Dates: start: 200701, end: 200912
  27. BYETTA [Suspect]
     Active Substance: EXENATIDE
     Route: 058
     Dates: start: 20090822
  28. PROTONIX [Concomitant]
     Active Substance: PANTOPRAZOLE SODIUM
     Dates: start: 20110627
  29. PLAVIX [Concomitant]
     Active Substance: CLOPIDOGREL BISULFATE
     Dates: start: 20030619
  30. GABAPENTIN/ NEURONTIN [Concomitant]
     Route: 048
     Dates: start: 20080130
  31. NOVOLIN [Concomitant]
     Active Substance: INSULIN HUMAN
     Dosage: 100 UNITS/ ML, Q6H
     Route: 058
     Dates: start: 20110627
  32. PREVACID [Concomitant]
     Active Substance: LANSOPRAZOLE
     Dosage: 30 MG
     Dates: start: 20110618
  33. NORCO [Concomitant]
     Active Substance: ACETAMINOPHEN\HYDROCODONE BITARTRATE
     Dosage: 10 MG
     Dates: start: 20110618
  34. LIPITOR [Concomitant]
     Active Substance: ATORVASTATIN CALCIUM
     Route: 048
     Dates: start: 20040526
  35. CEPHALEXIN. [Concomitant]
     Active Substance: CEPHALEXIN
     Route: 048
     Dates: start: 19990603
  36. VANTIN [Concomitant]
     Active Substance: CEFPODOXIME PROXETIL
     Route: 048
     Dates: start: 20031031
  37. MECLIZINE [Concomitant]
     Active Substance: MECLIZINE\MECLIZINE HYDROCHLORIDE
     Route: 048
     Dates: start: 20051111
  38. VIAGRA [Concomitant]
     Active Substance: SILDENAFIL CITRATE
     Route: 048
     Dates: start: 20081001

REACTIONS (3)
  - Metastases to peritoneum [Unknown]
  - Pancreatic carcinoma metastatic [Fatal]
  - Pulmonary embolism [Fatal]

NARRATIVE: CASE EVENT DATE: 20110328
